FAERS Safety Report 8208723-3 (Version None)
Quarter: 2012Q1

REPORT INFORMATION
  Report Type: 
  Country: None (occurrence: None)
  Receive Date: 20120314
  Receipt Date: 20120302
  Transmission Date: 20120608
  Serious: Yes (Other)
  Sender: FDA-Public Use
  Company Number: US-PFIZER INC-2011210004

PATIENT
  Age: 82 Year
  Sex: Female

DRUGS (4)
  1. LATANOPROST [Suspect]
     Indication: INTRAOCULAR PRESSURE INCREASED
     Dosage: UNK
     Dates: start: 20110401, end: 20110401
  2. PANTOPRAZOLE [Suspect]
     Dosage: UNK
  3. XALATAN [Suspect]
     Dosage: UNK
  4. XALATAN [Suspect]
     Dosage: UNK

REACTIONS (5)
  - UPPER RESPIRATORY TRACT INFECTION [None]
  - HYPOACUSIS [None]
  - DYSPNOEA [None]
  - EAR INFECTION [None]
  - ADVERSE REACTION [None]
